FAERS Safety Report 24948460 (Version 1)
Quarter: 2025Q1

REPORT INFORMATION
  Report Type: Spontaneous
  Country: US (occurrence: US)
  Receive Date: 20250210
  Receipt Date: 20250210
  Transmission Date: 20250409
  Serious: Yes (Death, Other)
  Sender: BRISTOL-MYERS SQUIBB COMPANY
  Company Number: US-BRISTOL-MYERS SQUIBB COMPANY-2025-017491

PATIENT
  Age: 85 Year
  Sex: Male
  Weight: 92.53 kg

DRUGS (1)
  1. REVLIMID [Suspect]
     Active Substance: LENALIDOMIDE
     Indication: Diffuse large B-cell lymphoma
     Dosage: 1 CAPSULE DAILY FOR 21 DAYS, THEN 7 DAYS OFF
     Route: 048
     Dates: start: 202412

REACTIONS (2)
  - Death [Fatal]
  - Off label use [Unknown]
